FAERS Safety Report 9720041 (Version 2)
Quarter: 2014Q1

REPORT INFORMATION
  Report Type: Spontaneous
  Country: US (occurrence: US)
  Receive Date: 20131128
  Receipt Date: 20140107
  Transmission Date: 20141002
  Serious: No
  Sender: FDA-Public Use
  Company Number: US-B.I. PHARMACEUTICALS,INC./RIDGEFIELD-2013-BI-38015BP

PATIENT
  Age: 69 Year
  Sex: Female
  Weight: 91.1 kg

DRUGS (24)
  1. PRADAXA [Suspect]
     Indication: CEREBROVASCULAR ACCIDENT PROPHYLAXIS
     Dosage: 300 MG
     Route: 048
     Dates: start: 2011
  2. SYMBICORT 160 [Concomitant]
     Dosage: 160-4.5 MCG/ACT
     Route: 055
  3. ALBUTEROL NEB [Concomitant]
     Dosage: DOSE: 2.5 PER 3 ML
     Route: 065
  4. BENTYL [Concomitant]
     Dosage: 30 MG
     Route: 048
  5. ACIDOPHILUS [Concomitant]
     Route: 065
  6. D-3-5 [Concomitant]
     Dosage: 5000 U
     Route: 048
  7. CALCIUM [Concomitant]
     Route: 065
  8. TEMAZEPAM [Concomitant]
     Dosage: ONE CAPSULE AT BED TIME AS NEEDED FOR SLEEP
     Route: 048
  9. COLESTIPOL HCL [Concomitant]
     Dosage: 2 G
     Route: 048
  10. B COMPLETE [Concomitant]
     Route: 065
  11. FLUTICASONE PROPIONATE [Concomitant]
     Dosage: DOSE PER APPLICATION: 50MCG/ACT; DAILY DOSE: 1 TO 2 SPRAYS IN EACH NOSTRIL ONCE DAILY
     Route: 055
  12. POTASSIUM CITRATE [Concomitant]
     Dosage: FORMULATION: ER TBCR
     Route: 065
  13. LANSOPRAZOLE [Concomitant]
     Dosage: 30 MG
     Route: 065
  14. METOPROLOL SUCCINATE [Concomitant]
     Dosage: 50 MG
     Route: 048
  15. NIFEDIPINE ER OSMOTIC [Concomitant]
     Dosage: 30 MG
     Route: 048
  16. ALPRAZOLAM [Concomitant]
     Dosage: 0.5 MG
     Route: 048
  17. TEGRETOL-XR [Concomitant]
     Dosage: 400 MG
     Route: 048
  18. LISINOPRIL [Concomitant]
     Dosage: 40 MG
     Route: 048
  19. CLONIDINE HCL [Concomitant]
     Dosage: DAILY DOSE: 0.2 MG/24 HR
     Route: 062
  20. BACLOFEN [Concomitant]
     Indication: MUSCLE SPASMS
     Dosage: 30 MG
     Route: 048
  21. NYSTATIN [Concomitant]
     Dosage: DOSE PER APPLICATION: 100000 UNIT/ML; DAILY DOSE: SWISH AND SWALLOW 5 ML 4 TIMES DAILY
     Route: 048
  22. GABAPENTIN [Concomitant]
     Indication: NEURALGIA
     Dosage: DAILY DOSE: 1 CAPSULE 3 TIMES DAILY PRN
     Route: 048
  23. BYSTOLIC [Concomitant]
     Dosage: 20 MG
     Route: 048
  24. SMZ-TMP DS 800 [Concomitant]
     Dosage: DAILY DOSE: 1 TABLET TWICE DAILY UNTIL FINISHED
     Route: 048

REACTIONS (1)
  - Sinusitis [Not Recovered/Not Resolved]
